FAERS Safety Report 24122872 (Version 2)
Quarter: 2024Q3

REPORT INFORMATION
  Report Type: Spontaneous
  Country: JP (occurrence: JP)
  Receive Date: 20240723
  Receipt Date: 20240802
  Transmission Date: 20241016
  Serious: Yes (Death, Life-Threatening, Hospitalization, Other)
  Sender: ALKEM
  Company Number: None

PATIENT
  Age: 6 Decade
  Sex: Male

DRUGS (5)
  1. AZATHIOPRINE [Suspect]
     Active Substance: AZATHIOPRINE
     Indication: Product used for unknown indication
     Dosage: 50 MILLIGRAM, QD
     Route: 065
  2. TACROLIMUS [Suspect]
     Active Substance: TACROLIMUS
     Indication: Product used for unknown indication
     Dosage: 7 MILLIGRAM, QD
     Route: 065
  3. IGURATIMOD [Suspect]
     Active Substance: IGURATIMOD
     Indication: Product used for unknown indication
     Dosage: 25 MILLIGRAM, QD
     Route: 065
  4. PREDNISOLONE [Suspect]
     Active Substance: PREDNISOLONE
     Indication: Product used for unknown indication
     Dosage: 18 MILLIGRAM, QD
     Route: 065
  5. EDOXABAN [Concomitant]
     Active Substance: EDOXABAN
     Indication: Product used for unknown indication
     Dosage: 30 MILLIGRAM, QD
     Route: 065

REACTIONS (6)
  - Intestinal haemorrhage [Fatal]
  - Pneumonia bacterial [Fatal]
  - Mycobacterium avium complex infection [Fatal]
  - Haematological infection [Fatal]
  - Gastrointestinal bacterial infection [Fatal]
  - Skin bacterial infection [Fatal]
